FAERS Safety Report 21770914 (Version 2)
Quarter: 2022Q4

REPORT INFORMATION
  Report Type: Spontaneous
  Country: AU (occurrence: AU)
  Receive Date: 20221223
  Receipt Date: 20221226
  Transmission Date: 20230112
  Serious: Yes (Hospitalization, Other)
  Sender: FDA-Public Use
  Company Number: None

PATIENT
  Age: 72 Year
  Sex: Female

DRUGS (8)
  1. PREDNISOLONE [Suspect]
     Active Substance: PREDNISOLONE
     Indication: Osteoarthritis
     Dosage: 5 MILLIGRAM/DAY
     Route: 065
  2. METHOTREXATE [Suspect]
     Active Substance: METHOTREXATE
     Indication: Osteoarthritis
     Dosage: 10 MILLIGRAM, ONCE A WEEK
     Route: 065
  3. TRIMETHOPRIM [Suspect]
     Active Substance: TRIMETHOPRIM
     Indication: Urinary tract infection
     Dosage: 300 MILLIGRAM/DAY, AT BED TIME
     Route: 065
  4. HYDROXYCHLOROQUINE [Suspect]
     Active Substance: HYDROXYCHLOROQUINE
     Indication: Osteoarthritis
     Dosage: 400 MILLIGRAM/DAY
     Route: 065
  5. ATORVASTATIN [Concomitant]
     Active Substance: ATORVASTATIN
     Indication: Cerebrovascular accident
     Dosage: 80 MILLIGRAM, UNKNOWN
     Route: 065
  6. ASPIRIN [Concomitant]
     Active Substance: ASPIRIN
     Indication: Cerebrovascular accident
     Dosage: 100 MILLIGRAM, UNKNOWN
     Route: 065
  7. FOLIC ACID [Concomitant]
     Active Substance: FOLIC ACID
     Indication: Osteoarthritis
     Dosage: 5 MILLIGRAM/ DAY (EXCLUDING THE DAY THE PATIENT WAS TAKING METHOTREXATE)
     Route: 065
  8. FOLIC ACID [Concomitant]
     Active Substance: FOLIC ACID
     Indication: Vitamin supplementation

REACTIONS (10)
  - Troponin decreased [Recovered/Resolved]
  - Myocardial infarction [Recovered/Resolved]
  - Mucosal inflammation [Recovered/Resolved]
  - Skin ulcer [Recovered/Resolved]
  - Acute kidney injury [Recovered/Resolved]
  - Myelosuppression [Recovered/Resolved]
  - Diverticulitis [Recovered/Resolved]
  - Herpes simplex viraemia [Recovered/Resolved]
  - Toxicity to various agents [Unknown]
  - Off label use [Unknown]
